FAERS Safety Report 24525973 (Version 2)
Quarter: 2024Q4

REPORT INFORMATION
  Report Type: Report from Study
  Country: US (occurrence: US)
  Receive Date: 20241020
  Receipt Date: 20241026
  Transmission Date: 20250114
  Serious: Yes (Hospitalization)
  Sender: ABBVIE
  Company Number: US-ABBVIE-5968681

PATIENT
  Sex: Female
  Weight: 71 kg

DRUGS (1)
  1. SKYRIZI [Suspect]
     Active Substance: RISANKIZUMAB-RZAA
     Indication: Crohn^s disease
     Route: 058
     Dates: start: 2024

REACTIONS (2)
  - Intestinal obstruction [Recovering/Resolving]
  - Muscular weakness [Unknown]

NARRATIVE: CASE EVENT DATE: 20240101
